FAERS Safety Report 13618114 (Version 3)
Quarter: 2017Q3

REPORT INFORMATION
  Report Type: Spontaneous
  Country: US (occurrence: US)
  Receive Date: 20170606
  Receipt Date: 20170720
  Transmission Date: 20171127
  Serious: No
  Sender: FDA-Public Use
  Company Number: US-ASTRAZENECA-2017SE58522

PATIENT
  Age: 48 Year
  Sex: Female
  Weight: 77.1 kg

DRUGS (4)
  1. PULMICORT FLEXHALER [Suspect]
     Active Substance: BUDESONIDE
     Indication: ASTHMA
     Dosage: 180 MCG, TWO PUFFS IN THE MORNING AND TWO PUFFS IN THE EVENING AS NEEDED
     Route: 055
     Dates: start: 2012
  2. PULMICORT FLEXHALER [Suspect]
     Active Substance: BUDESONIDE
     Indication: CEREBROVASCULAR ACCIDENT
     Dosage: 180 MCG, TWO PUFFS IN THE MORNING AND TWO PUFFS IN THE EVENING AS NEEDED
     Route: 055
     Dates: start: 2012
  3. PULMICORT FLEXHALER [Suspect]
     Active Substance: BUDESONIDE
     Indication: HYPERSENSITIVITY
     Dosage: 180 MCG, TWO PUFFS IN THE MORNING AND TWO PUFFS IN THE EVENING AS NEEDED
     Route: 055
     Dates: start: 2012
  4. TOPAMAX [Concomitant]
     Active Substance: TOPIRAMATE
     Indication: MIGRAINE
     Route: 048
     Dates: start: 2010

REACTIONS (7)
  - Retching [Unknown]
  - Intentional device misuse [Unknown]
  - Wrong technique in product usage process [Unknown]
  - Feeling abnormal [Unknown]
  - Cough [Unknown]
  - Product quality issue [Unknown]
  - Off label use [Unknown]

NARRATIVE: CASE EVENT DATE: 2012
